FAERS Safety Report 8431471-1 (Version None)
Quarter: 2012Q2

REPORT INFORMATION
  Report Type: 
  Country: None (occurrence: None)
  Receive Date: 20120613
  Receipt Date: 20120605
  Transmission Date: 20120825
  Serious: Yes (Hospitalization)
  Sender: FDA-Public Use
  Company Number: US-BAYER-2012-056983

PATIENT
  Age: 47 Year
  Sex: Female
  Weight: 67.63 kg

DRUGS (9)
  1. YAZ [Suspect]
     Indication: HORMONE REPLACEMENT THERAPY
  2. PERCOCET [Concomitant]
  3. CYMBALTA [Concomitant]
     Indication: STRESS
  4. ATIVAN [Concomitant]
     Dosage: 0.5 MG, TID
  5. ZOFRAN [Concomitant]
     Indication: NAUSEA
  6. NICOTINE [Concomitant]
  7. CYMBALTA [Concomitant]
     Indication: EX-TOBACCO USER
     Dosage: 30 MG, DAILY
  8. CYMBALTA [Concomitant]
     Indication: UNEVALUABLE EVENT
  9. ADVIL [Concomitant]

REACTIONS (1)
  - PULMONARY EMBOLISM [None]
